FAERS Safety Report 7700703-7 (Version None)
Quarter: 2011Q3

REPORT INFORMATION
  Report Type: 
  Country: None (occurrence: None)
  Receive Date: 20110817
  Receipt Date: 20110802
  Transmission Date: 20111222
  Serious: Yes (Death)
  Sender: FDA-Public Use
  Company Number: FK201101553

PATIENT
  Age: 47 Year
  Sex: Female

DRUGS (6)
  1. EPIRUBICIN [Suspect]
     Indication: BREAST CANCER
  2. CYCLOPHOSPHAMIDE [Suspect]
     Indication: BREAST CANCER
  3. PACLITAXEL (PACLITAXEL) (PACLITAXEL) [Concomitant]
  4. RADIOTHERAPY (THEARPEUTIC RADIOPHARMACEUTICALS) (THERAPEUTIC RADIOPHAR [Suspect]
     Indication: BREAST CANCER
  5. FLUOROURACIL [Suspect]
     Indication: BREAST CANCER
  6. TAMOXIFEN CITRATE [Concomitant]

REACTIONS (3)
  - MYELODYSPLASTIC SYNDROME [None]
  - DIZZINESS [None]
  - ASTHENIA [None]
